FAERS Safety Report 9074815 (Version 1)
Quarter: 2013Q1

REPORT INFORMATION
  Report Type: Spontaneous
  Country: US (occurrence: US)
  Receive Date: 20130129
  Receipt Date: 20130129
  Transmission Date: 20140127
  Serious: No
  Sender: FDA-Public Use
  Company Number: US-ABBOTT-12P-163-1007674-00

PATIENT
  Sex: Male
  Weight: 78.54 kg

DRUGS (3)
  1. LUPRON DEPOT [Suspect]
     Indication: PROSTATE CANCER
     Dates: start: 201210
  2. BICALUTAMIDE [Concomitant]
     Indication: PROSTATE CANCER
  3. MEGESTROL ACETATE [Concomitant]
     Indication: HOT FLUSH

REACTIONS (1)
  - Hot flush [Not Recovered/Not Resolved]
